FAERS Safety Report 6210890-8 (Version None)
Quarter: 2009Q2

REPORT INFORMATION
  Report Type: 
  Country: None (occurrence: None)
  Receive Date: 20090527
  Receipt Date: 20090512
  Transmission Date: 20091009
  Serious: Yes (Death)
  Sender: FDA-Public Use
  Company Number: 2009AL001450

PATIENT
  Age: 74 Year
  Sex: Female

DRUGS (6)
  1. DIGOXIN [Suspect]
     Indication: CARDIAC DISORDER
     Dosage: 0.25MG, PO
     Route: 048
  2. COREG [Concomitant]
  3. COUMADIN [Concomitant]
  4. CLONIDINE [Concomitant]
  5. CIPRO [Concomitant]
  6. LEVAQUIN [Concomitant]

REACTIONS (7)
  - ANHEDONIA [None]
  - ANXIETY [None]
  - DECREASED ACTIVITY [None]
  - DIASTOLIC DYSFUNCTION [None]
  - ECONOMIC PROBLEM [None]
  - INJURY [None]
  - SOCIAL PROBLEM [None]
